FAERS Safety Report 9557401 (Version 1)
Quarter: 2013Q3

REPORT INFORMATION
  Report Type: Spontaneous
  Country: US (occurrence: US)
  Receive Date: 20130926
  Receipt Date: 20130926
  Transmission Date: 20140515
  Serious: Yes (Other)
  Sender: FDA-Public Use
  Company Number: US-TEVA-434684USA

PATIENT
  Sex: Female

DRUGS (1)
  1. ESTRADIOL [Suspect]
     Indication: INFERTILITY
     Dates: start: 201308

REACTIONS (3)
  - Coeliac disease [Unknown]
  - Diarrhoea [Unknown]
  - Abdominal distension [Unknown]
